FAERS Safety Report 6992978-7 (Version None)
Quarter: 2010Q3

REPORT INFORMATION
  Report Type: 
  Country: None (occurrence: None)
  Receive Date: 20100917
  Receipt Date: 20100915
  Transmission Date: 20110219
  Serious: Yes (Other)
  Sender: FDA-Public Use
  Company Number: JP-BRISTOL-MYERS SQUIBB COMPANY-14856595

PATIENT
  Age: 85 Year
  Sex: Female

DRUGS (5)
  1. IRBETAN [Suspect]
     Indication: HYPERTENSION
     Route: 048
     Dates: start: 20090310
  2. NORVASC [Concomitant]
     Indication: HYPERTENSION
  3. LOXONIN [Concomitant]
  4. SELBEX [Concomitant]
     Indication: PROPHYLAXIS
  5. LASIX [Concomitant]

REACTIONS (3)
  - ANAEMIA [None]
  - CONDITION AGGRAVATED [None]
  - RENAL IMPAIRMENT [None]
